FAERS Safety Report 6903201-3 (Version None)
Quarter: 2010Q3

REPORT INFORMATION
  Report Type: 
  Country: None (occurrence: None)
  Receive Date: 20100803
  Receipt Date: 20080722
  Transmission Date: 20110219
  Serious: No
  Sender: FDA-Public Use
  Company Number: US-PFIZER INC-2008048112

PATIENT
  Sex: Female

DRUGS (1)
  1. LYRICA [Suspect]
     Indication: FIBROMYALGIA
     Route: 048
     Dates: start: 20080317

REACTIONS (5)
  - ABNORMAL DREAMS [None]
  - INJURY [None]
  - MIDDLE INSOMNIA [None]
  - SKIN LACERATION [None]
  - THINKING ABNORMAL [None]
